FAERS Safety Report 15413252 (Version 2)
Quarter: 2020Q3

REPORT INFORMATION
  Report Type: Report from Study
  Country: None (occurrence: US)
  Receive Date: 20180921
  Receipt Date: 20200923
  Transmission Date: 20201102
  Serious: Yes (Hospitalization, Other)
  Sender: FDA-Public Use
  Company Number: US-ABBVIE-18K-163-2488944-00

PATIENT
  Age: 65 Year
  Sex: Male

DRUGS (1)
  1. HUMIRA [Suspect]
     Active Substance: ADALIMUMAB
     Indication: CROHN^S DISEASE
     Route: 058

REACTIONS (8)
  - Peripheral swelling [Unknown]
  - Vision blurred [Unknown]
  - Transfusion [Unknown]
  - Eye infection fungal [Unknown]
  - Chronic kidney disease [Unknown]
  - Intensive care [Unknown]
  - Nephrolithiasis [Unknown]
  - Sepsis [Unknown]

NARRATIVE: CASE EVENT DATE: 201808
